FAERS Safety Report 8476895-1 (Version None)
Quarter: 2012Q2

REPORT INFORMATION
  Report Type: 
  Country: None (occurrence: None)
  Receive Date: 20120629
  Receipt Date: 20120619
  Transmission Date: 20120825
  Serious: No
  Sender: FDA-Public Use
  Company Number: US-BIOGENIDEC-2012BI020680

PATIENT
  Sex: Female

DRUGS (1)
  1. TYSABRI [Suspect]
     Indication: MULTIPLE SCLEROSIS
     Route: 042
     Dates: start: 20090921

REACTIONS (5)
  - TOOTH INFECTION [None]
  - NEPHROLITHIASIS [None]
  - NIGHT SWEATS [None]
  - MIGRAINE [None]
  - PERIODONTAL INFECTION [None]
